FAERS Safety Report 8165279-1 (Version None)
Quarter: 2012Q1

REPORT INFORMATION
  Report Type: 
  Country: None (occurrence: None)
  Receive Date: 20120227
  Receipt Date: 20120128
  Transmission Date: 20120608
  Serious: Yes (Other)
  Sender: FDA-Public Use
  Company Number: US-BAYER-2012-016435

PATIENT
  Age: 20 Year
  Sex: Female

DRUGS (2)
  1. MIRENA [Suspect]
     Indication: CONTRACEPTION
  2. MIRENA [Suspect]
     Dosage: UNK
     Dates: start: 20111215, end: 20111215

REACTIONS (1)
  - DEVICE DISLOCATION [None]
